FAERS Safety Report 8314286-4 (Version None)
Quarter: 2012Q2

REPORT INFORMATION
  Report Type: 
  Country: None (occurrence: None)
  Receive Date: 20120426
  Receipt Date: 20120423
  Transmission Date: 20120825
  Serious: Yes (Hospitalization, Other)
  Sender: FDA-Public Use
  Company Number: JP-PFIZER INC-2012090576

PATIENT
  Age: 65 Year
  Sex: Male
  Weight: 63.9 kg

DRUGS (8)
  1. TRAMADOL HYDROCHLORIDE [Concomitant]
     Dosage: 25 MG, 4X/DAY
     Route: 048
     Dates: start: 20110328, end: 20120410
  2. CYMBALTA [Concomitant]
     Dosage: 20 MG, 1X/DAY
     Route: 048
     Dates: start: 20120319
  3. RHYTHMY [Concomitant]
     Dosage: 2 MG, 1X/DAY
     Route: 048
  4. OXYCONTIN [Concomitant]
     Indication: PAIN
     Dosage: 20 MG, 2X/DAY
     Route: 048
     Dates: start: 20120109, end: 20120409
  5. NEUROTROPIN [Concomitant]
     Dosage: 4 IU, 4X/DAY
     Route: 048
     Dates: start: 20110104, end: 20120410
  6. DEPAS [Concomitant]
     Dosage: 1 MG, 1X/DAY
     Route: 048
     Dates: start: 20120222, end: 20120410
  7. LOXONIN [Concomitant]
     Dosage: 60 MG, 3X/DAY
     Route: 048
     Dates: start: 20111118
  8. LYRICA [Suspect]
     Dosage: 75 MG, 2X/DAY
     Route: 048
     Dates: start: 20120127, end: 20120410

REACTIONS (4)
  - PULMONARY OEDEMA [None]
  - DEPRESSED LEVEL OF CONSCIOUSNESS [None]
  - OEDEMA PERIPHERAL [None]
  - CARDIAC FAILURE [None]
